FAERS Safety Report 5521538-X (Version None)
Quarter: 2007Q4

REPORT INFORMATION
  Report Type: 
  Country: None (occurrence: None)
  Receive Date: 20071119
  Receipt Date: 20071119
  Transmission Date: 20080405
  Serious: Yes (Life-Threatening, Other)
  Sender: FDA-Public Use
  Company Number: None

PATIENT
  Age: 59 Year
  Sex: Male
  Weight: 97.5234 kg

DRUGS (3)
  1. LEUKINE [Suspect]
     Indication: PROPHYLAXIS
     Dosage: 375 UG DAILY 3RD SHOT INJ. (SC)
     Route: 058
     Dates: start: 20070924
  2. LEUKINE [Suspect]
     Indication: PROPHYLAXIS
     Dosage: 375 UG DAILY 3RD SHOT INJ. (SC)
     Route: 058
     Dates: start: 20070925
  3. LEUKINE [Suspect]
     Indication: PROPHYLAXIS
     Dosage: 375 UG DAILY 3RD SHOT INJ. (SC)
     Route: 058
     Dates: start: 20070926

REACTIONS (3)
  - BLOOD PRESSURE INCREASED [None]
  - DYSPNOEA [None]
  - PAIN [None]
